FAERS Safety Report 6876807-8 (Version None)
Quarter: 2010Q2

REPORT INFORMATION
  Report Type: 
  Country: None (occurrence: None)
  Receive Date: 20100616
  Receipt Date: 20100429
  Transmission Date: 20101027
  Serious: No
  Sender: FDA-Public Use
  Company Number: DSA_43078_2010

PATIENT
  Sex: Female

DRUGS (8)
  1. XENAZINE [Suspect]
     Indication: TARDIVE DYSKINESIA
     Dosage: 12.5 MG BID ORAL, 12.5 MG TID ORAL
     Route: 048
     Dates: start: 20100301, end: 20100401
  2. XENAZINE [Suspect]
     Indication: TARDIVE DYSKINESIA
     Dosage: 12.5 MG BID ORAL, 12.5 MG TID ORAL
     Route: 048
     Dates: start: 20100401
  3. DIVALPROEX SODIUM [Concomitant]
  4. GABAPENTIN [Concomitant]
  5. CYMBALTA [Concomitant]
  6. OXYCODONE [Concomitant]
  7. VICODIN [Concomitant]
  8. LOESTRIN 1.5/30 [Concomitant]

REACTIONS (4)
  - INSOMNIA [None]
  - NECK PAIN [None]
  - PAIN [None]
  - PARAESTHESIA [None]
